FAERS Safety Report 16084218 (Version 1)
Quarter: 2019Q1

REPORT INFORMATION
  Report Type: Spontaneous
  Country: US (occurrence: US)
  Receive Date: 20190318
  Receipt Date: 20190318
  Transmission Date: 20190418
  Serious: No
  Sender: FDA-Public Use
  Company Number: US-PFIZER INC-2019079376

PATIENT
  Age: 12 Year
  Sex: Male

DRUGS (3)
  1. RAPAMUNE [Suspect]
     Active Substance: SIROLIMUS
     Dosage: 0.5 MG, UNK
  2. RAPAMUNE [Suspect]
     Active Substance: SIROLIMUS
     Dosage: 1.5 MG, UNK (3 0.5 TO EQUAL THE 1.5)
  3. RAPAMUNE [Suspect]
     Active Substance: SIROLIMUS
     Indication: CARDIAC DISORDER
     Dosage: 1.5 MG, DAILY

REACTIONS (3)
  - Product dispensing error [Unknown]
  - Depression [Unknown]
  - Product use in unapproved indication [Unknown]
